FAERS Safety Report 21268795 (Version 1)
Quarter: 2022Q3

REPORT INFORMATION
  Report Type: Report from Study
  Country: US (occurrence: US)
  Receive Date: 20220830
  Receipt Date: 20220830
  Transmission Date: 20221027
  Serious: Yes (Hospitalization, Other)
  Sender: FDA-Public Use
  Company Number: US-KOREA IPSEN Pharma-2022-15159

PATIENT
  Age: 85 Year
  Sex: Female

DRUGS (1)
  1. SOMATULINE DEPOT [Suspect]
     Active Substance: LANREOTIDE ACETATE
     Indication: Carcinoid tumour
     Dosage: 120 MG/0.5 ML EVERY 4 WEEKS
     Route: 058
     Dates: start: 202101

REACTIONS (6)
  - Pancreatitis [Recovering/Resolving]
  - Dialysis [Unknown]
  - Malaise [Recovering/Resolving]
  - Diarrhoea [Recovering/Resolving]
  - Injection site mass [Recovering/Resolving]
  - Weight decreased [Recovered/Resolved]

NARRATIVE: CASE EVENT DATE: 20220401
